FAERS Safety Report 5024720-3 (Version None)
Quarter: 2006Q2

REPORT INFORMATION
  Report Type: 
  Country: None (occurrence: None)
  Receive Date: 20060427
  Receipt Date: 20060202
  Transmission Date: 20061013
  Serious: Yes (Other)
  Sender: FDA-Public Use
  Company Number: 2006017342

PATIENT
  Sex: Female

DRUGS (1)
  1. ZITHROMAX [Suspect]
     Indication: ILL-DEFINED DISORDER
     Dates: start: 20060111

REACTIONS (2)
  - VIRAL INFECTION [None]
  - WHITE BLOOD CELL COUNT DECREASED [None]
